FAERS Safety Report 22168078 (Version 1)
Quarter: 2023Q2

REPORT INFORMATION
  Report Type: Spontaneous
  Country: US (occurrence: None)
  Receive Date: 20230403
  Receipt Date: 20230403
  Transmission Date: 20230721
  Serious: Yes (Life-Threatening, Hospitalization)
  Sender: FDA-Public Use
  Company Number: 2023A077025

PATIENT
  Sex: Female

DRUGS (9)
  1. FARXIGA [Suspect]
     Active Substance: DAPAGLIFLOZIN PROPANEDIOL
     Indication: Diabetes mellitus
     Route: 048
  2. AMLODAPINE [Concomitant]
  3. METOPROLOL [Concomitant]
     Active Substance: METOPROLOL
  4. HUMALOG [Concomitant]
     Active Substance: INSULIN LISPRO
  5. LOSARTAN [Concomitant]
     Active Substance: LOSARTAN
  6. LASICS [Concomitant]
  7. LYRICA [Concomitant]
     Active Substance: PREGABALIN
  8. INSULIN LISPRO [Concomitant]
     Active Substance: INSULIN LISPRO
     Dosage: THREE TIMES A DAY
  9. KEPPRA [Concomitant]
     Active Substance: LEVETIRACETAM

REACTIONS (1)
  - Diabetic coma [Not Recovered/Not Resolved]
